FAERS Safety Report 18494785 (Version 2)
Quarter: 2020Q4

REPORT INFORMATION
  Report Type: Spontaneous
  Country: CN (occurrence: CN)
  Receive Date: 20201112
  Receipt Date: 20201124
  Transmission Date: 20210114
  Serious: Yes (Other)
  Sender: FDA-Public Use
  Company Number: CN-ACCORD-208041

PATIENT
  Age: 60 Year
  Sex: Male

DRUGS (3)
  1. PEMETREXED. [Suspect]
     Active Substance: PEMETREXED
     Indication: PLEUROPULMONARY BLASTOMA
     Dosage: FREQUENT DOSE REDUCTIONS
  2. CARBOPLATIN. [Suspect]
     Active Substance: CARBOPLATIN
     Indication: PLEUROPULMONARY BLASTOMA
     Dosage: ELIMINATED FROM THE TREATMENT REGIMEN
  3. BEVACIZUMAB. [Suspect]
     Active Substance: BEVACIZUMAB
     Indication: PLEUROPULMONARY BLASTOMA
     Dosage: FREQUENT DOSE REDUCTIONS

REACTIONS (1)
  - Pneumonia [Unknown]
